FAERS Safety Report 4841122-0 (Version None)
Quarter: 2005Q4

REPORT INFORMATION
  Report Type: 
  Country: None (occurrence: None)
  Receive Date: 20051130
  Receipt Date: 20051005
  Transmission Date: 20060501
  Serious: No
  Sender: FDA-Public Use
  Company Number: US-BRISTOL-MYERS SQUIBB COMPANY-13134796

PATIENT
  Age: 8 Year
  Sex: Female
  Weight: 27 kg

DRUGS (5)
  1. ABILIFY [Suspect]
  2. STRATTERA [Concomitant]
  3. ADDERALL XR 10 [Concomitant]
  4. TENEX [Concomitant]
  5. LAMICTAL [Concomitant]

REACTIONS (3)
  - ABNORMAL BEHAVIOUR [None]
  - EXTRAPYRAMIDAL DISORDER [None]
  - FEAR [None]
